FAERS Safety Report 6148134-8 (Version None)
Quarter: 2009Q2

REPORT INFORMATION
  Report Type: 
  Country: None (occurrence: None)
  Receive Date: 20090408
  Receipt Date: 20090402
  Transmission Date: 20091009
  Serious: Yes (Death)
  Sender: FDA-Public Use
  Company Number: FR-WYE-G03443909

PATIENT
  Age: 74 Year
  Sex: Male
  Weight: 71 kg

DRUGS (3)
  1. TYGACIL [Suspect]
     Indication: PNEUMONIA KLEBSIELLA
     Dosage: 100 MG TOTAL DAILY
     Route: 042
     Dates: start: 20090320
  2. FUROSEMIDE [Concomitant]
     Indication: RENAL FAILURE
     Dosage: UNKNOWN AND VARIABLE
     Route: 042
     Dates: start: 20090311
  3. LEVOPHED [Concomitant]
     Indication: SEPTIC SHOCK
     Dosage: UNKNOWN AND VARIABLE
     Route: 042
     Dates: start: 20090310

REACTIONS (5)
  - CONDITION AGGRAVATED [None]
  - DRUG INEFFECTIVE [None]
  - KLEBSIELLA BACTERAEMIA [None]
  - MULTI-ORGAN FAILURE [None]
  - SEPTIC SHOCK [None]
